FAERS Safety Report 20628212 (Version 1)
Quarter: 2022Q1

REPORT INFORMATION
  Report Type: Spontaneous
  Country: US (occurrence: None)
  Receive Date: 20220323
  Receipt Date: 20220323
  Transmission Date: 20220424
  Serious: No
  Sender: FDA-Public Use
  Company Number: None

PATIENT
  Age: 55 Year
  Sex: Female
  Weight: 62.6 kg

DRUGS (1)
  1. AMLODIPINE BESYLATE AND BENAZEPRIL HYDROCHLORIDE [Suspect]
     Active Substance: AMLODIPINE BESYLATE\BENAZEPRIL HYDROCHLORIDE
     Indication: Hypertension
     Dosage: OTHER QUANTITY : 10/40 MG;?FREQUENCY : DAILY;?
     Route: 048
     Dates: start: 2011, end: 2013

REACTIONS (3)
  - Drug ineffective [None]
  - Treatment failure [None]
  - Suspected product quality issue [None]

NARRATIVE: CASE EVENT DATE: 20130228
